FAERS Safety Report 6128118-6 (Version None)
Quarter: 2009Q1

REPORT INFORMATION
  Report Type: 
  Country: None (occurrence: None)
  Receive Date: 20090323
  Receipt Date: 20090310
  Transmission Date: 20090719
  Serious: Yes (Hospitalization)
  Sender: FDA-Public Use
  Company Number: ES-ELI_LILLY_AND_COMPANY-ES200902001206

PATIENT
  Age: 52 Year
  Sex: Male

DRUGS (6)
  1. BYETTA [Suspect]
     Indication: DIABETES MELLITUS
     Dosage: 5 UG, UNKNOWN
     Route: 058
     Dates: start: 20081101, end: 20081201
  2. AVANDAMET [Concomitant]
     Dosage: UNK, UNKNOWN
     Route: 065
  3. BISOPROLOL [Concomitant]
     Dosage: UNK, UNKNOWN
     Route: 065
  4. APOCARD [Concomitant]
     Dosage: UNK, UNKNOWN
     Route: 065
  5. ADIRO [Concomitant]
     Dosage: UNK, UNKNOWN
     Route: 065
  6. TEVETENS [Concomitant]
     Dosage: UNK, UNKNOWN
     Route: 065

REACTIONS (4)
  - ATRIAL FIBRILLATION [None]
  - FATIGUE [None]
  - MUSCULAR WEAKNESS [None]
  - PALPITATIONS [None]
